FAERS Safety Report 7389169-7 (Version None)
Quarter: 2011Q2

REPORT INFORMATION
  Report Type: 
  Country: None (occurrence: None)
  Receive Date: 20110401
  Receipt Date: 20110329
  Transmission Date: 20111010
  Serious: Yes (Other)
  Sender: FDA-Public Use
  Company Number: ES-ABBOTT-11P-144-0714863-00

PATIENT
  Age: 44 Year
  Sex: Male

DRUGS (3)
  1. METILPREDNISOLONA [Suspect]
     Indication: CROHN'S DISEASE
     Route: 048
     Dates: start: 20091101, end: 20110101
  2. HUMIRA [Suspect]
     Indication: CROHN'S DISEASE
     Route: 058
     Dates: start: 20090424, end: 20110311
  3. METILPREDNISOLONA [Suspect]
     Dosage: 40MG/DAY10,30MG/DAY10,20MG/DAY10,5MG/48H 10
     Dates: start: 20101101, end: 20110101

REACTIONS (2)
  - PUSTULAR PSORIASIS [None]
  - INTESTINAL OBSTRUCTION [None]
